FAERS Safety Report 5297800-5 (Version None)
Quarter: 2007Q1

REPORT INFORMATION
  Report Type: 
  Country: None (occurrence: None)
  Receive Date: 20070201
  Receipt Date: 20061020
  Transmission Date: 20070707
  Serious: No
  Sender: FDA-Public Use
  Company Number: 2006PV023859

PATIENT

DRUGS (4)
  1. BYETTA [Suspect]
     Indication: DRUG USE FOR UNKNOWN INDICATION
     Dosage: 5 MCG;SC
     Route: 058
  2. BUMEX [Suspect]
     Indication: DRUG USE FOR UNKNOWN INDICATION
  3. ACIPHEX [Suspect]
     Indication: DRUG USE FOR UNKNOWN INDICATION
  4. COLACE [Suspect]
     Indication: DRUG USE FOR UNKNOWN INDICATION

REACTIONS (4)
  - ASTHENIA [None]
  - DRUG INTERACTION [None]
  - FACIAL PALSY [None]
  - HYPOAESTHESIA [None]
